FAERS Safety Report 6958655-3 (Version None)
Quarter: 2010Q3

REPORT INFORMATION
  Report Type: 
  Country: None (occurrence: None)
  Receive Date: 20100830
  Receipt Date: 20100830
  Transmission Date: 20110219
  Serious: Yes (Disabling)
  Sender: FDA-Public Use
  Company Number: None

PATIENT
  Age: 35 Year
  Sex: Male
  Weight: 99.7913 kg

DRUGS (1)
  1. RISPERIDONE [Suspect]
     Indication: SCHIZOPHRENIA
     Dosage: 4 MG QHS PO
     Route: 048
     Dates: start: 20100625, end: 20100629

REACTIONS (2)
  - EXTRAPYRAMIDAL DISORDER [None]
  - EYE ROLLING [None]
